FAERS Safety Report 19285200 (Version 1)
Quarter: 2021Q2

REPORT INFORMATION
  Report Type: Spontaneous
  Country: US (occurrence: US)
  Receive Date: 20210521
  Receipt Date: 20210521
  Transmission Date: 20210717
  Serious: Yes (Other)
  Sender: FDA-Public Use
  Company Number: US-PFIZER INC-2021531527

PATIENT
  Age: 73 Year
  Sex: Female

DRUGS (1)
  1. MEPIVACAINE HCL [Suspect]
     Active Substance: MEPIVACAINE HYDROCHLORIDE
     Indication: DENTAL CARE
     Dosage: UNK

REACTIONS (5)
  - Facial pain [Unknown]
  - Migraine [Unknown]
  - Drug hypersensitivity [Unknown]
  - Oral pain [Unknown]
  - Angioedema [Unknown]
